FAERS Safety Report 11390077 (Version 1)
Quarter: 2015Q3

REPORT INFORMATION
  Report Type: Spontaneous
  Country: CH (occurrence: CH)
  Receive Date: 20150818
  Receipt Date: 20150818
  Transmission Date: 20151125
  Serious: Yes (Hospitalization, Other)
  Sender: FDA-Public Use
  Company Number: CH-009507513-1508CHE005237

PATIENT
  Age: 50 Year
  Sex: Male

DRUGS (4)
  1. ZOLPIDEM TARTRATE. [Suspect]
     Active Substance: ZOLPIDEM TARTRATE
     Dosage: 38 MG, ONCE
     Route: 048
     Dates: start: 20150530, end: 20150530
  2. ACETAMINOPHEN. [Suspect]
     Active Substance: ACETAMINOPHEN
     Dosage: UNK, ONCE
     Route: 048
     Dates: start: 20150530, end: 20150530
  3. REMERON [Suspect]
     Active Substance: MIRTAZAPINE
     Dosage: UNK, ONCE
     Route: 048
     Dates: start: 20150530, end: 20150530
  4. DICLOFENAC [Suspect]
     Active Substance: DICLOFENAC
     Dosage: UNK, ONCE
     Route: 048
     Dates: start: 20150530, end: 20150530

REACTIONS (13)
  - Metabolic acidosis [Recovered/Resolved]
  - Rhabdomyolysis [Recovered/Resolved]
  - Delirium [Recovered/Resolved]
  - Pneumonia aspiration [Recovered/Resolved]
  - Prothrombin time prolonged [Recovered/Resolved]
  - Agitation [Recovered/Resolved]
  - Somnolence [Recovered/Resolved]
  - Confusional state [Recovered/Resolved]
  - Suicide attempt [Recovered/Resolved]
  - Hallucination [Recovered/Resolved]
  - Aspartate aminotransferase increased [Recovered/Resolved]
  - Alanine aminotransferase increased [Recovered/Resolved]
  - Blood creatinine increased [Recovered/Resolved]

NARRATIVE: CASE EVENT DATE: 2015
